FAERS Safety Report 6550962-1 (Version None)
Quarter: 2010Q1

REPORT INFORMATION
  Report Type: 
  Country: None (occurrence: None)
  Receive Date: 20100122
  Receipt Date: 20100122
  Transmission Date: 20100710
  Serious: Yes (Other)
  Sender: FDA-Public Use
  Company Number: None

PATIENT
  Sex: Female
  Weight: 68.9467 kg

DRUGS (1)
  1. LISINOPRIL [Suspect]
     Indication: PROPHYLAXIS
     Dosage: 20MG A.M. AND P.M. PO
     Route: 048
     Dates: start: 20060815, end: 20091214

REACTIONS (6)
  - BLOOD POTASSIUM INCREASED [None]
  - JOINT RANGE OF MOTION DECREASED [None]
  - JOINT STIFFNESS [None]
  - PERIARTHRITIS [None]
  - RENAL IMPAIRMENT [None]
  - TREMOR [None]
